FAERS Safety Report 21661497 (Version 1)
Quarter: 2022Q4

REPORT INFORMATION
  Report Type: Spontaneous
  Country: US (occurrence: US)
  Receive Date: 20221130
  Receipt Date: 20221130
  Transmission Date: 20230112
  Serious: Yes (Hospitalization)
  Sender: FDA-Public Use
  Company Number: US-BRISTOL-MYERS SQUIBB COMPANY-2022-142449

PATIENT
  Age: 63 Year
  Sex: Male
  Weight: 54.3 kg

DRUGS (1)
  1. LENALIDOMIDE [Suspect]
     Active Substance: LENALIDOMIDE
     Indication: Plasma cell myeloma
     Dosage: DAILY ON DAYS 1-7 AND 15-21 EVERY 28 DAYS
     Route: 048
     Dates: start: 20211021

REACTIONS (1)
  - Adverse event [Unknown]
